FAERS Safety Report 5874795-4 (Version None)
Quarter: 2008Q3

REPORT INFORMATION
  Report Type: 
  Country: None (occurrence: None)
  Receive Date: 20080908
  Receipt Date: 20080908
  Transmission Date: 20090109
  Serious: Yes (Death)
  Sender: FDA-Public Use
  Company Number: None

PATIENT
  Sex: Male
  Weight: 102.0593 kg

DRUGS (2)
  1. DURAGESIC-100 [Suspect]
     Indication: MUSCLE SPASMS
     Dosage: 1 PATCH Q 3 DAYS TD
     Route: 062
     Dates: start: 20060519
  2. DURAGESIC-100 [Suspect]
     Indication: MUSCLE SPASMS
     Dosage: 1 PATCH Q 3 DAYS TD
     Route: 062
     Dates: start: 20060530

REACTIONS (1)
  - THERAPEUTIC AGENT TOXICITY [None]
